FAERS Safety Report 7347869-9 (Version None)
Quarter: 2011Q1

REPORT INFORMATION
  Report Type: 
  Country: None (occurrence: None)
  Receive Date: 20110311
  Receipt Date: 20110307
  Transmission Date: 20110831
  Serious: Yes (Other)
  Sender: FDA-Public Use
  Company Number: JP-EISAI INC-E2090-01492-SPO-JP

PATIENT
  Sex: Female

DRUGS (2)
  1. PHENOBAL [Suspect]
     Dosage: UNKNOWN
     Route: 065
     Dates: start: 20101228, end: 20110205
  2. EXCEGRAN [Suspect]
     Indication: EPILEPSY
     Dosage: UNKNOWN
     Route: 048
     Dates: start: 20101228, end: 20110205

REACTIONS (2)
  - DRUG ERUPTION [None]
  - GENERALISED ERYTHEMA [None]
